FAERS Safety Report 5608525-8 (Version None)
Quarter: 2008Q1

REPORT INFORMATION
  Report Type: 
  Country: None (occurrence: None)
  Receive Date: 20080130
  Receipt Date: 20080118
  Transmission Date: 20080703
  Serious: Yes (Hospitalization, Other)
  Sender: FDA-Public Use
  Company Number: US-PFIZER INC-2007078362

PATIENT
  Sex: Male
  Weight: 77.6 kg

DRUGS (1)
  1. DILANTIN [Suspect]
     Indication: CONVULSION
     Route: 048
     Dates: start: 20070810, end: 20070824

REACTIONS (5)
  - DRUG LEVEL DECREASED [None]
  - EPSTEIN-BARR VIRUS ANTIBODY POSITIVE [None]
  - RASH [None]
  - STEVENS-JOHNSON SYNDROME [None]
  - TOXIC EPIDERMAL NECROLYSIS [None]
